FAERS Safety Report 20189156 (Version 1)
Quarter: 2021Q4

REPORT INFORMATION
  Report Type: Spontaneous
  Country: CN (occurrence: CN)
  Receive Date: 20211215
  Receipt Date: 20211215
  Transmission Date: 20220304
  Serious: Yes (Hospitalization, Other)
  Sender: FDA-Public Use
  Company Number: CN-BRACCO-2021CN05303

PATIENT
  Age: 6 Year
  Sex: Female

DRUGS (1)
  1. IOPAMIRO [Suspect]
     Active Substance: IOPAMIDOL
     Indication: Computerised tomogram
     Dosage: 15 ML, SINGLE
     Route: 042
     Dates: start: 20211118, end: 20211118

REACTIONS (8)
  - Altered state of consciousness [Recovering/Resolving]
  - Seizure [Recovering/Resolving]
  - Heart rate increased [Recovering/Resolving]
  - Respiratory rate decreased [Recovering/Resolving]
  - Pyrexia [Recovering/Resolving]
  - Laryngeal oedema [Recovering/Resolving]
  - Nervous system disorder [Recovering/Resolving]
  - Blood pressure increased [Recovering/Resolving]

NARRATIVE: CASE EVENT DATE: 20211118
